FAERS Safety Report 10009822 (Version 2)
Quarter: 2014Q1

REPORT INFORMATION
  Report Type: Spontaneous
  Country: US (occurrence: US)
  Receive Date: 20140312
  Receipt Date: 20140312
  Transmission Date: 20141002
  Serious: No
  Sender: FDA-Public Use
  Company Number: US-INCYTE CORPORATION-2012IN002621

PATIENT
  Sex: Female

DRUGS (3)
  1. JAKAFI [Suspect]
     Indication: MYELOFIBROSIS
     Dosage: 15 MG, BID
     Route: 048
     Dates: start: 20121109, end: 20121111
  2. JAKAFI [Suspect]
     Dosage: 20 MG, QD
     Route: 048
     Dates: start: 20121112, end: 20121216
  3. JAKAFI [Suspect]
     Dosage: 15 MG, QD
     Route: 048
     Dates: start: 20121217

REACTIONS (6)
  - Nausea [Unknown]
  - Feeling abnormal [Unknown]
  - Asthenia [Unknown]
  - Rash [Unknown]
  - Headache [Unknown]
  - Haematocrit decreased [Unknown]
